FAERS Safety Report 15295597 (Version 1)
Quarter: 2018Q3

REPORT INFORMATION
  Report Type: Spontaneous
  Country: FR (occurrence: FR)
  Receive Date: 20180820
  Receipt Date: 20180820
  Transmission Date: 20181010
  Serious: Yes (Death)
  Sender: FDA-Public Use
  Company Number: PHHY2018FR074095

PATIENT
  Age: 27 Year
  Sex: Female
  Weight: 110 kg

DRUGS (7)
  1. COUMADINE [Concomitant]
     Active Substance: WARFARIN SODIUM
     Indication: STENT PLACEMENT
     Dosage: 1 DF, QD
     Route: 048
     Dates: start: 201412
  2. PROZAC [Suspect]
     Active Substance: FLUOXETINE HYDROCHLORIDE
     Indication: BIPOLAR DISORDER
     Dosage: 240 DF, UNK
     Route: 048
     Dates: start: 20180530, end: 20180530
  3. CLOMIPRAMINE [Suspect]
     Active Substance: CLOMIPRAMINE
     Indication: BIPOLAR DISORDER
     Dosage: 120 DF, UNK
     Route: 048
     Dates: start: 20180530, end: 20180530
  4. BROMAZEPAM [Suspect]
     Active Substance: BROMAZEPAM
     Indication: BIPOLAR DISORDER
     Dosage: 90 DF, UNK
     Route: 048
     Dates: start: 20180530, end: 20180530
  5. LOXAPAC [Suspect]
     Active Substance: LOXAPINE
     Indication: BIPOLAR DISORDER
     Dosage: 120 DF, UNK
     Route: 048
     Dates: start: 20180530, end: 20180530
  6. TERCIAN [Suspect]
     Active Substance: CYAMEMAZINE
     Indication: BIPOLAR DISORDER
     Dosage: 60 DF, UNK
     Route: 048
     Dates: start: 20180530, end: 20180530
  7. MIANSERIN [Suspect]
     Active Substance: MIANSERIN
     Indication: BIPOLAR DISORDER
     Dosage: 60 DF, UNK
     Route: 048
     Dates: start: 20180530, end: 20180530

REACTIONS (2)
  - Toxicity to various agents [Fatal]
  - Poisoning deliberate [Fatal]

NARRATIVE: CASE EVENT DATE: 20180530
